FAERS Safety Report 8581272 (Version 3)
Quarter: 2012Q4

REPORT INFORMATION
  Report Type: 
  Country: JP (occurrence: JP)
  Receive Date: 20120525
  Receipt Date: 20121128
  Transmission Date: 20130627
  Serious: Yes (Other)
  Sender: FDA-Public Use
  Company Number: JP-JNJFOC-20120516804

PATIENT
  Age: 38 Year
  Sex: Male

DRUGS (10)
  1. INVEGA [Suspect]
     Indication: ADJUSTMENT DISORDER
     Route: 048
     Dates: start: 20111007, end: 20111008
  2. INVEGA [Suspect]
     Indication: SCHIZOPHRENIA
     Route: 048
     Dates: start: 20111007, end: 20111008
  3. MYSLEE [Concomitant]
     Route: 048
     Dates: start: 20110922
  4. GANATON [Concomitant]
     Route: 048
     Dates: start: 20110922
  5. LEXOTAN [Concomitant]
     Route: 048
     Dates: start: 20110922
  6. ACICLOVIR [Concomitant]
     Route: 041
  7. NOVORAPID [Concomitant]
     Indication: DIABETES MELLITUS
     Route: 058
  8. NOVORAPID [Concomitant]
     Indication: DIABETES MELLITUS
     Route: 058
     Dates: end: 20111008
  9. LANTUS [Concomitant]
     Indication: DIABETES MELLITUS
     Route: 058
  10. LANTUS [Concomitant]
     Indication: DIABETES MELLITUS
     Route: 058
     Dates: end: 20111008

REACTIONS (2)
  - Hypoglycaemia [Recovered/Resolved]
  - Off label use [Unknown]
